FAERS Safety Report 24625019 (Version 1)
Quarter: 2024Q4

REPORT INFORMATION
  Report Type: Spontaneous
  Country: US (occurrence: US)
  Receive Date: 20241115
  Receipt Date: 20241115
  Transmission Date: 20250115
  Serious: Yes (Other)
  Sender: AMGEN
  Company Number: US-AMGEN-USASP2024224597

PATIENT

DRUGS (2)
  1. PREDNISONE [Suspect]
     Active Substance: PREDNISONE
     Indication: Myelin oligodendrocyte glycoprotein antibody-associated disease
     Dosage: UNK UNK, QD
     Route: 048
  2. PREDNISONE [Suspect]
     Active Substance: PREDNISONE
     Indication: Optic ischaemic neuropathy

REACTIONS (4)
  - Myelin oligodendrocyte glycoprotein antibody-associated disease [Unknown]
  - Optic ischaemic neuropathy [Unknown]
  - Drug effective for unapproved indication [Unknown]
  - Off label use [Unknown]
